FAERS Safety Report 6171855-8 (Version None)
Quarter: 2009Q2

REPORT INFORMATION
  Report Type: 
  Country: None (occurrence: None)
  Receive Date: 20090429
  Receipt Date: 20090421
  Transmission Date: 20091009
  Serious: Yes (Hospitalization, Other)
  Sender: FDA-Public Use
  Company Number: GB-JNJFOC-20090404962

PATIENT
  Age: 67 Year
  Sex: Female

DRUGS (7)
  1. REMICADE [Suspect]
     Route: 042
  2. REMICADE [Suspect]
     Indication: RHEUMATOID ARTHRITIS
     Route: 042
  3. METHOTREXATE [Concomitant]
  4. PREDNISOLONE [Concomitant]
  5. AMITRIPTLINE HYDROCHLORIDE TAB [Concomitant]
  6. FOLIC ACID [Concomitant]
  7. WARFARIN [Concomitant]

REACTIONS (1)
  - NON-HODGKIN'S LYMPHOMA [None]
